FAERS Safety Report 11202930 (Version 1)
Quarter: 2015Q2

REPORT INFORMATION
  Report Type: Spontaneous
  Country: US (occurrence: US)
  Receive Date: 20150619
  Receipt Date: 20150619
  Transmission Date: 20150821
  Serious: Yes (Other)
  Sender: FDA-Public Use
  Company Number: US-TEVA-565913USA

PATIENT
  Sex: Female

DRUGS (3)
  1. ASPIRIN. [Concomitant]
     Active Substance: ASPIRIN
  2. KLONOPIN [Concomitant]
     Active Substance: CLONAZEPAM
  3. VENLAFAXINE [Suspect]
     Active Substance: VENLAFAXINE HYDROCHLORIDE
     Indication: DEPRESSION
     Dosage: 150 MILLIGRAM DAILY;
     Dates: start: 20150407

REACTIONS (8)
  - Product substitution issue [Unknown]
  - Hypoaesthesia [Unknown]
  - Palpitations [Unknown]
  - Malaise [Unknown]
  - Angina pectoris [Unknown]
  - Drug ineffective [Unknown]
  - Panic attack [Unknown]
  - Fatigue [Unknown]

NARRATIVE: CASE EVENT DATE: 201504
